FAERS Safety Report 8344082-3 (Version None)
Quarter: 2012Q2

REPORT INFORMATION
  Report Type: 
  Country: None (occurrence: None)
  Receive Date: 20120508
  Receipt Date: 20120502
  Transmission Date: 20120825
  Serious: Yes (Hospitalization, Disabling, Other)
  Sender: FDA-Public Use
  Company Number: FR-B.I. PHARMACEUTICALS,INC./RIDGEFIELD-2012-FF-00465FF

PATIENT
  Sex: Male
  Weight: 60 kg

DRUGS (7)
  1. DIGOXIN [Concomitant]
     Indication: ARRHYTHMIA
     Route: 048
  2. LASIX [Concomitant]
     Indication: HYPERTENSION
     Dosage: 20 MG
     Route: 048
  3. PRADAXA [Suspect]
     Indication: CEREBROVASCULAR ACCIDENT PROPHYLAXIS
     Route: 048
     Dates: end: 20120111
  4. ATORVASTATIN [Concomitant]
     Indication: DYSLIPIDAEMIA
     Dosage: 20 MG
     Route: 048
  5. INSULINE [Concomitant]
     Indication: DIABETES MELLITUS
     Route: 048
  6. IPERTEN [Concomitant]
     Indication: HYPERTENSION
     Dosage: 10 MG
     Route: 048
  7. VALSARTAN  AND HYDROCHLOROTHIAZIDE [Concomitant]
     Indication: HYPERTENSION
     Dosage: 160 MG/12.5 MG
     Route: 048

REACTIONS (1)
  - TRANSIENT ISCHAEMIC ATTACK [None]
